FAERS Safety Report 20436739 (Version 2)
Quarter: 2022Q1

REPORT INFORMATION
  Report Type: Spontaneous
  Country: US (occurrence: US)
  Receive Date: 20220207
  Receipt Date: 20220224
  Transmission Date: 20220423
  Serious: No
  Sender: FDA-Public Use
  Company Number: US-EPICPHARMA-US-2022EPCSPO00111

PATIENT
  Sex: Female

DRUGS (1)
  1. METFORMIN HYDROCHLORIDE [Suspect]
     Active Substance: METFORMIN HYDROCHLORIDE
     Indication: Blood glucose abnormal
     Route: 048
     Dates: start: 202201, end: 202201

REACTIONS (3)
  - Urticaria [Recovered/Resolved]
  - Product substitution issue [Unknown]
  - Reaction to excipient [None]

NARRATIVE: CASE EVENT DATE: 20220101
